FAERS Safety Report 6189365-0 (Version None)
Quarter: 2009Q2

REPORT INFORMATION
  Report Type: 
  Country: None (occurrence: None)
  Receive Date: 20090512
  Receipt Date: 20090430
  Transmission Date: 20091009
  Serious: Yes (Hospitalization, Other)
  Sender: FDA-Public Use
  Company Number: 2009004655

PATIENT
  Age: 65 Year
  Sex: Female

DRUGS (6)
  1. TRISENOX [Suspect]
     Indication: ACUTE PROMYELOCYTIC LEUKAEMIA
     Dosage: 0.15 MG/KG (0.15 MG/KG,L IN 1 D), INTRAVENOUS DRIP
     Route: 041
     Dates: start: 20051004, end: 20051006
  2. TRISENOX [Suspect]
     Indication: ACUTE PROMYELOCYTIC LEUKAEMIA
     Dosage: 0.15 MG/KG (0.15 MG/KG,L IN 1 D), INTRAVENOUS DRIP
     Route: 041
     Dates: start: 20051017
  3. DAUNORUBICIN HCL [Suspect]
     Indication: ACUTE PROMYELOCYTIC LEUKAEMIA
     Dosage: 30 MG/M2 (30 MG/M2,1 IN 1 D), INTRAVENOUS
     Route: 042
     Dates: start: 20050927, end: 20050929
  4. CYTARABINE [Concomitant]
  5. ZOFRAN [Concomitant]
  6. DEXAMETHASONE TAB [Concomitant]

REACTIONS (6)
  - ATRIAL FIBRILLATION [None]
  - ELECTROCARDIOGRAM QT PROLONGED [None]
  - HAEMOGLOBIN DECREASED [None]
  - HYPOTENSION [None]
  - PULMONARY OEDEMA [None]
  - WHITE BLOOD CELL COUNT DECREASED [None]
